FAERS Safety Report 10484144 (Version 1)
Quarter: 2014Q3

REPORT INFORMATION
  Report Type: Spontaneous
  Country: US (occurrence: None)
  Receive Date: 20140926
  Receipt Date: 20140926
  Transmission Date: 20150326
  Serious: Yes (Other)
  Sender: FDA-Public Use
  Company Number: 001804481A

PATIENT
  Age: 27 Year
  Sex: Female

DRUGS (3)
  1. PROACTIV PLUS COMPLEXION PERFECTING HYDRATOR [Suspect]
     Active Substance: SALICYLIC ACID
     Indication: ACNE
     Dosage: BID THE QD DERMAL
     Dates: start: 20140802, end: 20140827
  2. PROACTIV PLUS PORE TARGETING TREATMENT [Suspect]
     Active Substance: BENZOYL PEROXIDE
     Indication: ACNE
     Dosage: BID THE QD DERMAL
     Dates: start: 20140802, end: 20140827
  3. PROACTIVPLUS SKIN SMOOTHING EXFOLIATOR [Suspect]
     Active Substance: BENZOYL PEROXIDE
     Indication: ACNE
     Dosage: BID THEN QD DERMAL
     Dates: start: 20140802, end: 20140827

REACTIONS (7)
  - Skin irritation [None]
  - Acne [None]
  - Swelling face [None]
  - Burning sensation [None]
  - Erythema [None]
  - Skin haemorrhage [None]
  - Skin fissures [None]

NARRATIVE: CASE EVENT DATE: 20140815
